FAERS Safety Report 7543595-1 (Version None)
Quarter: 2011Q2

REPORT INFORMATION
  Report Type: 
  Country: None (occurrence: None)
  Receive Date: 20110613
  Receipt Date: 20030115
  Transmission Date: 20111010
  Serious: Yes (Life-Threatening)
  Sender: FDA-Public Use
  Company Number: PHFR2003GB00554

PATIENT
  Sex: Male

DRUGS (1)
  1. CLOZAPINE [Suspect]
     Dosage: 500 MG, PER DAY
     Route: 048
     Dates: start: 20020226

REACTIONS (4)
  - SEPTIC SHOCK [None]
  - COMA [None]
  - RENAL FAILURE ACUTE [None]
  - PERITONITIS [None]
